FAERS Safety Report 8195527-3 (Version None)
Quarter: 2012Q1

REPORT INFORMATION
  Report Type: 
  Country: None (occurrence: None)
  Receive Date: 20120308
  Receipt Date: 20120305
  Transmission Date: 20120608
  Serious: Yes (Other)
  Sender: FDA-Public Use
  Company Number: US-PFIZER INC-2012059510

PATIENT
  Sex: Female
  Weight: 68.934 kg

DRUGS (1)
  1. LYRICA [Suspect]
     Indication: NECK PAIN
     Dosage: 75 MG, 3X/DAY
     Route: 048
     Dates: start: 20100101

REACTIONS (3)
  - FALL [None]
  - LOCALISED INFECTION [None]
  - EXCORIATION [None]
